FAERS Safety Report 19009935 (Version 1)
Quarter: 2021Q1

REPORT INFORMATION
  Report Type: Spontaneous
  Country: IE (occurrence: IE)
  Receive Date: 20210315
  Receipt Date: 20210315
  Transmission Date: 20210420
  Serious: Yes (Hospitalization, Other)
  Sender: FDA-Public Use
  Company Number: IE-009507513-2103IRL003345

PATIENT
  Age: 72 Year
  Sex: Female

DRUGS (13)
  1. MESNA. [Concomitant]
     Active Substance: MESNA
     Indication: MALIGNANT NEOPLASM PROGRESSION
     Dosage: UNK, CYCLICAL
  2. LOSARTAN. [Concomitant]
     Active Substance: LOSARTAN
  3. ENOXAPARIN SODIUM. [Concomitant]
     Active Substance: ENOXAPARIN SODIUM
     Indication: THROMBOSIS PROPHYLAXIS
  4. FORTISIP COMPACT FIBRE [Concomitant]
  5. POTASSIUM (UNSPECIFIED) [Concomitant]
     Active Substance: POTASSIUM
     Indication: ROUTINE HEALTH MAINTENANCE
  6. APREPITANT. [Suspect]
     Active Substance: APREPITANT
     Dosage: UNK
     Route: 048
     Dates: start: 2019
  7. DOMPERIDONE [Concomitant]
     Active Substance: DOMPERIDONE
  8. LERCANIDIPINE [Concomitant]
     Active Substance: LERCANIDIPINE
  9. SENNA [Concomitant]
     Active Substance: SENNA LEAF\SENNOSIDES\SENNOSIDES A AND B
  10. HYDROCHLOROTHIAZIDE. [Concomitant]
     Active Substance: HYDROCHLOROTHIAZIDE
  11. VITAMINS (UNSPECIFIED) [Concomitant]
     Active Substance: VITAMINS
  12. IFOSFAMIDE. [Suspect]
     Active Substance: IFOSFAMIDE
     Indication: MALIGNANT NEOPLASM PROGRESSION
     Dosage: UNK, CYCLICAL
     Dates: start: 2019
  13. VITAFLO PRO CAL [Concomitant]

REACTIONS (1)
  - Toxic encephalopathy [Recovered/Resolved]

NARRATIVE: CASE EVENT DATE: 2019
